FAERS Safety Report 11444783 (Version 3)
Quarter: 2015Q4

REPORT INFORMATION
  Report Type: Spontaneous
  Country: GB (occurrence: None)
  Receive Date: 20150831
  Receipt Date: 20151009
  Transmission Date: 20160304
  Serious: Yes (Hospitalization)
  Sender: FDA-Public Use
  Company Number: GB2015K4871SPO

PATIENT
  Age: 78 Year
  Sex: Male
  Weight: 80 kg

DRUGS (14)
  1. FUROSEMIDE (FRUSEMIDE) [Suspect]
     Active Substance: FUROSEMIDE
     Indication: OEDEMA
     Route: 048
  2. SALBUTAMOL [Concomitant]
     Active Substance: ALBUTEROL
  3. FUROSEMIDE (FRUSEMIDE) [Suspect]
     Active Substance: FUROSEMIDE
     Indication: CARDIAC FAILURE
     Route: 048
  4. ASPIRIN. [Concomitant]
     Active Substance: ASPIRIN
  5. VERAPAMIL HYDROCHLORIDE. [Suspect]
     Active Substance: VERAPAMIL HYDROCHLORIDE
     Indication: HYPERTENSION
     Route: 048
  6. LANSOPRAZOLE GENERIC (LANSOPRAZOLE) UNKNOWN [Suspect]
     Active Substance: LANSOPRAZOLE
     Indication: GASTROOESOPHAGEAL REFLUX DISEASE
     Route: 048
     Dates: start: 20041210
  7. IPRATROPIUM BROMIDE (IPRATROPIUM) [Concomitant]
  8. SERETIDE (FLUTICASONE PROPIONATE MICRONISED, SALMETEROL XINALOATE MICRONISED) [Concomitant]
  9. SERTRALINE [Concomitant]
     Active Substance: SERTRALINE HYDROCHLORIDE
  10. PERINDOPRIL GENERIC (PERINDOPRIL) [Suspect]
     Active Substance: PERINDOPRIL
     Indication: HYPERTENSION
     Route: 048
     Dates: start: 20060101, end: 20150806
  11. THEOPHYLLINE [Suspect]
     Active Substance: THEOPHYLLINE ANHYDROUS
     Indication: CHRONIC OBSTRUCTIVE PULMONARY DISEASE
     Route: 048
     Dates: start: 20150727, end: 20150806
  12. ISOSORBIDE MONONITRATE (ISOSORBIDE) [Concomitant]
  13. TERBINAFINE. [Concomitant]
     Active Substance: TERBINAFINE
  14. TERBINAFINE HYDROCHLORIDE (TERBINAFINE) [Concomitant]

REACTIONS (9)
  - Drug interaction [None]
  - Atrial fibrillation [None]
  - Tachycardia [None]
  - Sepsis [None]
  - Hyponatraemia [None]
  - Cough [None]
  - Confusional state [None]
  - Dyspnoea [None]
  - Respiratory failure [None]

NARRATIVE: CASE EVENT DATE: 20150804
